FAERS Safety Report 15439469 (Version 1)
Quarter: 2018Q3

REPORT INFORMATION
  Report Type: Spontaneous
  Country: US (occurrence: US)
  Receive Date: 20180924
  Receipt Date: 20180924
  Transmission Date: 20181010
  Serious: Yes (Hospitalization)
  Sender: FDA-Public Use
  Company Number: None

PATIENT
  Age: 36 Year
  Sex: Female
  Weight: 134.4 kg

DRUGS (5)
  1. ONCASPAR [Suspect]
     Active Substance: PEGASPARGASE
     Dates: end: 20180824
  2. METHOTREXATE. [Suspect]
     Active Substance: METHOTREXATE
     Route: 037
     Dates: end: 20180917
  3. DAUNORUBICIN [Suspect]
     Active Substance: DAUNORUBICIN
     Dates: end: 20180829
  4. VINCRISTINE SULFATE. [Suspect]
     Active Substance: VINCRISTINE SULFATE
     Dates: end: 20180829
  5. CYTARABINE. [Suspect]
     Active Substance: CYTARABINE
     Route: 037
     Dates: end: 20180808

REACTIONS (8)
  - Acute kidney injury [None]
  - Dialysis [None]
  - Cerebral haemorrhage [None]
  - Hepatic enzyme increased [None]
  - Sepsis [None]
  - Blood bilirubin increased [None]
  - Refractoriness to platelet transfusion [None]
  - Thrombocytopenia [None]

NARRATIVE: CASE EVENT DATE: 20180916
